FAERS Safety Report 4713271-9 (Version None)
Quarter: 2005Q3

REPORT INFORMATION
  Report Type: 
  Country: None (occurrence: None)
  Receive Date: 20050701
  Receipt Date: 20040916
  Transmission Date: 20060218
  Serious: Yes (Hospitalization)
  Sender: FDA-Public Use
  Company Number: US-SHR-03-002841

PATIENT
  Age: 53 Year
  Sex: Female
  Weight: 56.2 kg

DRUGS (3)
  1. YASMIN [Suspect]
     Indication: MENOPAUSE
     Dosage: 1 TAB(S), 1X/DAY, ORAL
     Route: 048
     Dates: start: 20030108, end: 20030213
  2. ACIPHEX [Concomitant]
  3. LEVOXYL [Concomitant]

REACTIONS (2)
  - PULMONARY THROMBOSIS [None]
  - THROMBOSIS [None]
